FAERS Safety Report 8403351-9 (Version None)
Quarter: 2012Q2

REPORT INFORMATION
  Report Type: 
  Country: None (occurrence: None)
  Receive Date: 20120323
  Receipt Date: 20110427
  Transmission Date: 20120825
  Serious: Yes (Hospitalization)
  Sender: FDA-Public Use
  Company Number: 163-21880-11043770

PATIENT
  Age: 71 Year
  Sex: Male
  Weight: 74.8 kg

DRUGS (1)
  1. REVLIMID [Suspect]
     Indication: MYELODYSPLASTIC SYNDROME
     Dosage: 10 MG, 1 IN 1 D, PO, HELD
     Route: 048
     Dates: start: 20100201

REACTIONS (3)
  - PARAESTHESIA [None]
  - INFECTION [None]
  - RASH [None]
